FAERS Safety Report 10971142 (Version 1)
Quarter: 2015Q1

REPORT INFORMATION
  Report Type: Spontaneous
  Country: US (occurrence: None)
  Receive Date: 20150330
  Receipt Date: 20150330
  Transmission Date: 20150721
  Serious: Yes (Life-Threatening, Disabling, Other)
  Sender: FDA-Public Use
  Company Number: None

PATIENT
  Age: 54 Year
  Sex: Female
  Weight: 63.5 kg

DRUGS (3)
  1. FLUOXETINE [Concomitant]
     Active Substance: FLUOXETINE\FLUOXETINE HYDROCHLORIDE
  2. VITAMIN C [Concomitant]
     Active Substance: ASCORBIC ACID
  3. CLONAZEPAM .5 TEVA [Suspect]
     Active Substance: CLONAZEPAM
     Indication: POST-TRAUMATIC STRESS DISORDER
     Route: 048

REACTIONS (18)
  - Fear of eating [None]
  - Abasia [None]
  - Speech disorder [None]
  - Muscle twitching [None]
  - Muscle spasms [None]
  - Asthenia [None]
  - Impaired self-care [None]
  - Activities of daily living impaired [None]
  - Tremor [None]
  - Myalgia [None]
  - Suicidal ideation [None]
  - Insomnia [None]
  - Disturbance in attention [None]
  - Panic reaction [None]
  - Alopecia [None]
  - Hallucination [None]
  - Impaired driving ability [None]
  - Therapy cessation [None]

NARRATIVE: CASE EVENT DATE: 20130913
